FAERS Safety Report 16187178 (Version 1)
Quarter: 2019Q2

REPORT INFORMATION
  Report Type: Spontaneous
  Country: DE (occurrence: DE)
  Receive Date: 20190411
  Receipt Date: 20190411
  Transmission Date: 20190711
  Serious: Yes (Other)
  Sender: FDA-Public Use
  Company Number: DE-AMGEN-DEUSP2019056733

PATIENT
  Age: 74 Year
  Sex: Male

DRUGS (1)
  1. IMLYGIC [Suspect]
     Active Substance: TALIMOGENE LAHERPAREPVEC
     Indication: METASTATIC MALIGNANT MELANOMA
     Dosage: 2.5 MILLILITER (10^6 PFU/ML)
     Route: 026

REACTIONS (4)
  - Perivascular dermatitis [Recovered/Resolved]
  - Epidermal necrosis [Recovered/Resolved]
  - Fatigue [Unknown]
  - Pyrexia [Unknown]
